FAERS Safety Report 9157353 (Version 1)
Quarter: 2013Q1

REPORT INFORMATION
  Report Type: Spontaneous
  Country: US (occurrence: None)
  Receive Date: 20130211
  Receipt Date: 20130211
  Transmission Date: 20140127
  Serious: Yes (Hospitalization)
  Sender: FDA-Public Use
  Company Number: ACO_34102_2013

PATIENT
  Age: 60 Year
  Sex: Female

DRUGS (1)
  1. AMPYRA (DALFAMPRIDINE) TABLET, 10MG [Suspect]
     Indication: GAIT DISTURBANCE
     Dates: start: 20120329

REACTIONS (5)
  - Foot fracture [None]
  - Fall [None]
  - Ulcer [None]
  - Fungal infection [None]
  - Infection [None]
